FAERS Safety Report 19446696 (Version 1)
Quarter: 2021Q2

REPORT INFORMATION
  Report Type: Spontaneous
  Country: US (occurrence: US)
  Receive Date: 20210618
  Receipt Date: 20210618
  Transmission Date: 20210717
  Serious: Yes (Hospitalization)
  Sender: FDA-Public Use
  Company Number: None

PATIENT
  Age: 65 Year
  Sex: Female
  Weight: 86.64 kg

DRUGS (3)
  1. LENALIDOMIDE (CC?5013) [Suspect]
     Active Substance: LENALIDOMIDE
     Dates: end: 20170516
  2. VELCADE [Suspect]
     Active Substance: BORTEZOMIB
     Dates: end: 20170418
  3. DEXAMETHASONE. [Suspect]
     Active Substance: DEXAMETHASONE
     Dates: end: 20170514

REACTIONS (2)
  - Blood sodium decreased [None]
  - Asthenia [None]

NARRATIVE: CASE EVENT DATE: 20170418
